FAERS Safety Report 5736750-4 (Version None)
Quarter: 2008Q2

REPORT INFORMATION
  Report Type: 
  Country: None (occurrence: None)
  Receive Date: 20080513
  Receipt Date: 20080505
  Transmission Date: 20081010
  Serious: Yes (Death, Other)
  Sender: FDA-Public Use
  Company Number: FR-BOEHRINGER INGELHEIM GMBH, GERMANY-2008-BP-07204RO

PATIENT
  Age: 5 Year
  Sex: Female

DRUGS (9)
  1. AZATHIOPRINE [Suspect]
     Indication: IMMUNOSUPPRESSION
  2. CYCLOSPORINE [Suspect]
     Indication: IMMUNOSUPPRESSION
  3. PREDNISONE TAB [Concomitant]
     Indication: IMMUNOSUPPRESSION
  4. TACROLIMUS [Concomitant]
     Indication: IMMUNOSUPPRESSION
  5. CYCLOPHOSPHAMIDE [Concomitant]
     Indication: CHEMOTHERAPY
  6. VINCRISTINE [Concomitant]
     Indication: CHEMOTHERAPY
  7. METHYLPREDNISOLONE [Concomitant]
     Indication: CHEMOTHERAPY
  8. DAUNORUBICIN HCL [Concomitant]
     Indication: CHEMOTHERAPY
  9. VINDESINE [Concomitant]
     Indication: CHEMOTHERAPY

REACTIONS (6)
  - EPSTEIN-BARR VIRAEMIA [None]
  - HEPATOSPLENOMEGALY [None]
  - HISTIOCYTOSIS HAEMATOPHAGIC [None]
  - MULTI-ORGAN FAILURE [None]
  - PHARYNGOLARYNGEAL ABSCESS [None]
  - PYREXIA [None]
